FAERS Safety Report 4680474-1 (Version None)
Quarter: 2005Q2

REPORT INFORMATION
  Report Type: 
  Country: None (occurrence: None)
  Receive Date: 20050601
  Receipt Date: 20050516
  Transmission Date: 20051028
  Serious: Yes (Other)
  Sender: FDA-Public Use
  Company Number: JP_050506568

PATIENT
  Age: 88 Year
  Sex: Female

DRUGS (2)
  1. GEMZAR [Suspect]
     Indication: GALLBLADDER CANCER
  2. IRINOTECAN [Concomitant]

REACTIONS (3)
  - BLOOD CREATININE INCREASED [None]
  - BLOOD UREA INCREASED [None]
  - NEPHRITIS INTERSTITIAL [None]
